FAERS Safety Report 11511050 (Version 2)
Quarter: 2015Q4

REPORT INFORMATION
  Report Type: Spontaneous
  Country: US (occurrence: US)
  Receive Date: 20150915
  Receipt Date: 20151012
  Transmission Date: 20160304
  Serious: Yes (Other)
  Sender: FDA-Public Use
  Company Number: US-APOTEX-2015AP012703

PATIENT
  Sex: Female

DRUGS (3)
  1. ADENOSINE. [Suspect]
     Active Substance: ADENOSINE
     Indication: ARRHYTHMIA
     Dosage: UNK
     Route: 065
  2. PAXIL [Suspect]
     Active Substance: PAROXETINE HYDROCHLORIDE
     Indication: DEPRESSION
     Dosage: 40 MG, UNK
     Route: 065
     Dates: start: 1998
  3. PAXIL [Suspect]
     Active Substance: PAROXETINE HYDROCHLORIDE
     Indication: ANXIETY

REACTIONS (12)
  - Arrhythmia [Unknown]
  - Dry skin [Unknown]
  - Irritability [Unknown]
  - Heart rate increased [Unknown]
  - Dizziness [Unknown]
  - Paraesthesia [Unknown]
  - Back pain [Unknown]
  - Alopecia [Unknown]
  - Anxiety [Unknown]
  - Drug dependence [Not Recovered/Not Resolved]
  - Feeling hot [Unknown]
  - Withdrawal syndrome [Unknown]
